FAERS Safety Report 9270914 (Version 1)
Quarter: 2013Q2

REPORT INFORMATION
  Report Type: Spontaneous
  Country: US (occurrence: US)
  Receive Date: 20130506
  Receipt Date: 20130506
  Transmission Date: 20140414
  Serious: No
  Sender: FDA-Public Use
  Company Number: US-009507513-1305USA000575

PATIENT
  Age: 72 Year
  Sex: Female

DRUGS (7)
  1. JANUVIA [Suspect]
     Indication: TYPE 2 DIABETES MELLITUS
     Dosage: HALF OF ONE 100 MG TABLET, ONCE DAILY
     Route: 048
     Dates: start: 2008, end: 20130410
  2. JANUVIA [Suspect]
     Dosage: HALF OF ONE 100 MG TABLET, ONCE DAILY
     Dates: start: 201304
  3. GLIPIZIDE [Concomitant]
  4. IMDUR [Concomitant]
  5. LOVASTATIN [Concomitant]
  6. LISINOPRIL [Concomitant]
  7. OMEPRAZOLE [Concomitant]

REACTIONS (2)
  - Blood glucose increased [Recovering/Resolving]
  - Wrong technique in drug usage process [Unknown]
